FAERS Safety Report 8517440-1 (Version None)
Quarter: 2012Q3

REPORT INFORMATION
  Report Type: 
  Country: None (occurrence: None)
  Receive Date: 20120718
  Receipt Date: 20120717
  Transmission Date: 20120928
  Serious: Yes (Death, Hospitalization)
  Sender: FDA-Public Use
  Company Number: BR-ROCHE-1044878

PATIENT
  Sex: Female
  Weight: 61.9 kg

DRUGS (2)
  1. TRASTUZUMAB EMTANSINE [Suspect]
     Indication: BREAST CANCER METASTATIC
     Dosage: LAST DOSE TAKEN WAS 237.6 MG
     Route: 042
     Dates: start: 20111213, end: 20120124
  2. PERTUZUMAB [Suspect]
     Indication: BREAST CANCER METASTATIC
     Route: 042
     Dates: start: 20111213, end: 20120124

REACTIONS (1)
  - SEPTIC SHOCK [None]
